FAERS Safety Report 9292564 (Version 1)
Quarter: 2013Q2

REPORT INFORMATION
  Report Type: Spontaneous
  Country: US (occurrence: None)
  Receive Date: 20130515
  Receipt Date: 20130515
  Transmission Date: 20140414
  Serious: No
  Sender: FDA-Public Use
  Company Number: None

PATIENT
  Age: 51 Year
  Sex: Male

DRUGS (2)
  1. ZANAFLEX [Suspect]
     Dates: start: 20111011, end: 20111115
  2. ULTRAM [Suspect]
     Dates: start: 20111005, end: 20111115

REACTIONS (9)
  - Drug-induced liver injury [None]
  - International normalised ratio increased [None]
  - Inadequate analgesia [None]
  - Alanine aminotransferase increased [None]
  - Aspartate aminotransferase increased [None]
  - Blood bilirubin increased [None]
  - Antinuclear antibody positive [None]
  - Blood alkaline phosphatase increased [None]
  - Alcohol use [None]
